FAERS Safety Report 11773164 (Version 1)
Quarter: 2015Q4

REPORT INFORMATION
  Report Type: Spontaneous
  Country: US (occurrence: US)
  Receive Date: 20151124
  Receipt Date: 20151124
  Transmission Date: 20160304
  Serious: No
  Sender: FDA-Public Use
  Company Number: US-SUPERNUS PHARMACEUTICALS, INC.-2015SUP00104

PATIENT

DRUGS (1)
  1. TROKENDI XR [Suspect]
     Active Substance: TOPIRAMATE

REACTIONS (1)
  - Rash [Unknown]
